FAERS Safety Report 14355846 (Version 1)
Quarter: 2018Q1

REPORT INFORMATION
  Report Type: Spontaneous
  Country: US (occurrence: US)
  Receive Date: 20180105
  Receipt Date: 20180105
  Transmission Date: 20180509
  Serious: No
  Sender: FDA-Public Use
  Company Number: US-ASTRAZENECA-2017SF26723

PATIENT
  Sex: Male
  Weight: 65.3 kg

DRUGS (4)
  1. HFA INHALER [Concomitant]
     Indication: DYSPNOEA
     Dosage: 1 PUFF AS NEEDED UP TO 4 TIMES A DAY
  2. SYMBICORT [Suspect]
     Active Substance: BUDESONIDE\FORMOTEROL FUMARATE DIHYDRATE
     Indication: CHRONIC OBSTRUCTIVE PULMONARY DISEASE
     Dosage: 160/4.5MCG 2 PUFFS TWO TIMES A DAY
     Route: 055
  3. SYMBICORT [Suspect]
     Active Substance: BUDESONIDE\FORMOTEROL FUMARATE DIHYDRATE
     Indication: EMPHYSEMA
     Dosage: 160/4.5MCG 2 PUFFS TWO TIMES A DAY
     Route: 055
  4. HFA INHALER [Concomitant]
     Indication: DYSPNOEA
     Dosage: 2 PUFFS UNKNOWN FREQUENCY

REACTIONS (4)
  - Intentional product misuse [Unknown]
  - Product packaging quantity issue [Unknown]
  - Dyspnoea [Unknown]
  - Dizziness [Unknown]
